FAERS Safety Report 6589360 (Version 2)
Quarter: 2020Q3

REPORT INFORMATION
  Report Type: Spontaneous
  Country: US (occurrence: US)
  Receive Date: 20080320
  Receipt Date: 20080403
  Transmission Date: 20201104
  Serious: Yes (Death)
  Sender: FDA-Public Use
  Company Number: US-ROCHE-552938

PATIENT
  Age: 78 Year
  Sex: Female

DRUGS (2)
  1. IMMUNOGLOBULIN INJECTABLE [Concomitant]
     Route: 058
  2. IBANDRONIC ACID. [Suspect]
     Active Substance: IBANDRONIC ACID
     Indication: OSTEOPOROSIS
     Route: 065
     Dates: start: 20070912

REACTIONS (3)
  - Hypertension [Fatal]
  - Sepsis [Fatal]
  - Diabetes mellitus [Fatal]
